FAERS Safety Report 5815709-2 (Version None)
Quarter: 2008Q3

REPORT INFORMATION
  Report Type: 
  Country: None (occurrence: None)
  Receive Date: 20080721
  Receipt Date: 20080710
  Transmission Date: 20090109
  Serious: Yes (Death, Other)
  Sender: FDA-Public Use
  Company Number: US-ELI_LILLY_AND_COMPANY-US200807002183

PATIENT
  Age: 45 Year
  Sex: Female

DRUGS (9)
  1. ZYPREXA ZYDIS [Suspect]
     Indication: SCHIZOPHRENIA
     Dosage: 20 MG, EACH EVENING
     Dates: start: 20050816, end: 20060307
  2. ZONEGRAN [Concomitant]
  3. VALPROIC ACID [Concomitant]
  4. CLORAZEPATE DIPOTASSIUM [Concomitant]
  5. DEPO-PROVERA [Concomitant]
  6. FOLIC ACID [Concomitant]
  7. VITAPLEX [Concomitant]
  8. SENOKOT [Concomitant]
  9. MILK OF MAGNESIA [Concomitant]

REACTIONS (7)
  - CONVULSION [None]
  - DRUG LEVEL INCREASED [None]
  - EPILEPSY [None]
  - MIOSIS [None]
  - OVERDOSE [None]
  - PULMONARY CONGESTION [None]
  - PULMONARY OEDEMA [None]
